FAERS Safety Report 18037008 (Version 1)
Quarter: 2020Q3

REPORT INFORMATION
  Report Type: Spontaneous
  Country: FR (occurrence: FR)
  Receive Date: 20200717
  Receipt Date: 20200717
  Transmission Date: 20201103
  Serious: Yes (Hospitalization)
  Sender: FDA-Public Use
  Company Number: FR-TEVA-2020-FR-1800409

PATIENT
  Age: 65 Year
  Sex: Female
  Weight: 44 kg

DRUGS (5)
  1. IRINOTECAN (CHLORHYDRATE D^) TRIHYDRATE [Suspect]
     Active Substance: IRINOTECAN HYDROCHLORIDE
     Dosage: FOLFIRI PROTOCOL
     Route: 041
     Dates: start: 201706, end: 201712
  2. VECTIBIX [Suspect]
     Active Substance: PANITUMUMAB
     Route: 041
     Dates: start: 201706, end: 201712
  3. AVASTIN [Concomitant]
     Active Substance: BEVACIZUMAB
     Dosage: AVASTIN + 5?FU PROTOCOL:UNIT DOSE :215 MILLIGRAM
     Route: 041
     Dates: start: 20200127, end: 20200309
  4. FLUOROURACILE [Suspect]
     Active Substance: FLUOROURACIL
     Indication: COLORECTAL CANCER
     Dosage: FOLFIRI PROTOCOL
     Route: 041
     Dates: start: 201706, end: 201712
  5. XELODA [Concomitant]
     Active Substance: CAPECITABINE
     Dosage: 1150 MG2 / D UNTIL 04/14/202; 1000 MG 2 / D UNTIL 05/18/2020
     Route: 048
     Dates: start: 20200323, end: 20200518

REACTIONS (1)
  - Subacute cutaneous lupus erythematosus [Recovered/Resolved]

NARRATIVE: CASE EVENT DATE: 20200402
